FAERS Safety Report 18147338 (Version 1)
Quarter: 2020Q3

REPORT INFORMATION
  Report Type: Spontaneous
  Country: US (occurrence: US)
  Receive Date: 20200814
  Receipt Date: 20200814
  Transmission Date: 20201103
  Serious: Yes (Hospitalization, Other)
  Sender: FDA-Public Use
  Company Number: US-QUAGEN-2020QUALIT00061

PATIENT
  Age: 55 Year
  Sex: Male

DRUGS (8)
  1. EMTRICITABINE [Concomitant]
     Active Substance: EMTRICITABINE
     Indication: HIV INFECTION
     Route: 065
  2. ELVITEGRAVIR [Concomitant]
     Active Substance: ELVITEGRAVIR
     Indication: HIV INFECTION
  3. HYDROCORTISONE. [Interacting]
     Active Substance: HYDROCORTISONE
     Dosage: 20 MG PO IN THE MORNING
     Route: 048
  4. FLUTICASONE. [Concomitant]
     Active Substance: FLUTICASONE
     Indication: NASAL CONGESTION
     Route: 045
  5. TENOFOVIR ALAFENAMIDE [Concomitant]
     Active Substance: TENOFOVIR ALAFENAMIDE
     Indication: HIV INFECTION
     Route: 065
  6. HYDROCORTISONE. [Interacting]
     Active Substance: HYDROCORTISONE
     Dosage: PO IN THE LATE AFTERNOON
     Route: 048
  7. TRIAMCINOLONE ACETONIDE LOTION USP [Suspect]
     Active Substance: TRIAMCINOLONE ACETONIDE
     Indication: SYNOVIAL CYST
     Route: 014
  8. COBICISTAT [Suspect]
     Active Substance: COBICISTAT
     Indication: HIV INFECTION
     Route: 065

REACTIONS (6)
  - Cushing^s syndrome [Recovering/Resolving]
  - Pulmonary embolism [Unknown]
  - Skin ulcer [Unknown]
  - Hypothalamic pituitary adrenal axis suppression [Recovering/Resolving]
  - Drug interaction [Unknown]
  - Deep vein thrombosis [Unknown]
